FAERS Safety Report 20917560 (Version 1)
Quarter: 2022Q2

REPORT INFORMATION
  Report Type: Spontaneous
  Country: US (occurrence: US)
  Receive Date: 20220606
  Receipt Date: 20220606
  Transmission Date: 20220720
  Serious: No
  Sender: FDA-Public Use
  Company Number: US-BRISTOL-MYERS SQUIBB COMPANY-2022-037045

PATIENT
  Age: 65 Year
  Sex: Female

DRUGS (6)
  1. DROXIA [Suspect]
     Active Substance: HYDROXYUREA
     Indication: Essential thrombocythaemia
     Dosage: DOSE : 1000MG;     FREQ : 1000MG DAILY AND 2000 MG ON SUNDAYS
     Route: 048
     Dates: start: 20121226
  2. ASPIRIN [Concomitant]
     Active Substance: ASPIRIN
     Indication: Product used for unknown indication
     Route: 065
  3. CELEBREX [Concomitant]
     Active Substance: CELECOXIB
     Indication: Product used for unknown indication
     Route: 065
  4. LUTEIN [Concomitant]
     Active Substance: LUTEIN
     Indication: Product used for unknown indication
     Route: 065
  5. Nuvigal [Concomitant]
     Indication: Product used for unknown indication
     Route: 065
  6. Oxcarbezine [Concomitant]
     Indication: Product used for unknown indication
     Route: 065

REACTIONS (2)
  - No adverse event [Unknown]
  - Intentional product use issue [Unknown]
